FAERS Safety Report 20679457 (Version 1)
Quarter: 2022Q2

REPORT INFORMATION
  Report Type: Spontaneous
  Country: US (occurrence: US)
  Receive Date: 20220406
  Receipt Date: 20220406
  Transmission Date: 20220721
  Serious: No
  Sender: FDA-Public Use
  Company Number: US-TEVA-2022-US-2017875

PATIENT
  Sex: Female

DRUGS (2)
  1. AMOXICILLIN [Suspect]
     Active Substance: AMOXICILLIN
     Dosage: 8 GRAM DAILY; 8 GRAMS PER DAY
     Route: 065
  2. PENICILLIN V POTASSIUM [Suspect]
     Active Substance: PENICILLIN V POTASSIUM
     Dosage: 6 GRAM DAILY; 6 GRAMS PER DAY
     Route: 065

REACTIONS (5)
  - Central venous catheterisation [Unknown]
  - Bacterial infection [Unknown]
  - Liver disorder [Unknown]
  - Product storage error [Unknown]
  - Product administration error [Unknown]
